FAERS Safety Report 10069126 (Version 1)
Quarter: 2014Q2

REPORT INFORMATION
  Report Type: Spontaneous
  Country: IR (occurrence: IR)
  Receive Date: 20140409
  Receipt Date: 20140409
  Transmission Date: 20141212
  Serious: Yes (Death, Hospitalization, Other)
  Sender: FDA-Public Use
  Company Number: IR-MILLENNIUM PHARMACEUTICALS, INC.-2014TUS002657

PATIENT
  Age: 37 Year
  Sex: Female

DRUGS (1)
  1. COLCHICINE [Suspect]

REACTIONS (15)
  - Cardiac arrest [Fatal]
  - Bradycardia [Fatal]
  - Hypotension [Unknown]
  - Loss of consciousness [Unknown]
  - Cyanosis [Unknown]
  - Dyspnoea [Unknown]
  - Metabolic acidosis [Unknown]
  - Dehydration [Unknown]
  - Pallor [Unknown]
  - Intentional overdose [Unknown]
  - Nausea [Unknown]
  - Vomiting [Unknown]
  - Abdominal pain [Unknown]
  - Abdominal tenderness [Unknown]
  - Asthenia [Unknown]
